FAERS Safety Report 10227281 (Version 1)
Quarter: 2014Q2

REPORT INFORMATION
  Report Type: Spontaneous
  Country: CA (occurrence: CA)
  Receive Date: 20140610
  Receipt Date: 20140610
  Transmission Date: 20141212
  Serious: Yes (Other)
  Sender: FDA-Public Use
  Company Number: CA-ROCHE-1411689

PATIENT
  Age: 40 Year
  Sex: Female

DRUGS (4)
  1. XOLAIR [Suspect]
     Indication: ASTHMA
     Route: 058
     Dates: start: 20130912
  2. XOLAIR [Suspect]
     Indication: ASTHMA
     Route: 058
     Dates: start: 20131107
  3. XOLAIR [Suspect]
     Route: 058
     Dates: start: 20140102
  4. HYDROXYCHLOROQUINE [Concomitant]
     Route: 065

REACTIONS (7)
  - Dry throat [Unknown]
  - Pruritus generalised [Recovering/Resolving]
  - Dysphagia [Unknown]
  - Gingival swelling [Recovering/Resolving]
  - Gingival pain [Unknown]
  - Bronchitis [Unknown]
  - Body temperature decreased [Unknown]
